FAERS Safety Report 5586884-2 (Version None)
Quarter: 2008Q1

REPORT INFORMATION
  Report Type: 
  Country: None (occurrence: None)
  Receive Date: 20080108
  Receipt Date: 20080108
  Transmission Date: 20080703
  Serious: Yes (Other)
  Sender: FDA-Public Use
  Company Number: None

PATIENT
  Age: 57 Year
  Sex: Female
  Weight: 81.6475 kg

DRUGS (1)
  1. COMBIGAN [Suspect]
     Indication: GLAUCOMA
     Dosage: 1 DROP BOTH EYES  BID INTRAOCULAR
     Route: 031
     Dates: start: 19850104, end: 19850104

REACTIONS (2)
  - HEADACHE [None]
  - VISUAL DISTURBANCE [None]
